FAERS Safety Report 20832337 (Version 1)
Quarter: 2022Q2

REPORT INFORMATION
  Report Type: 
  Country: None (occurrence: None)
  Receive Date: 20220516
  Receipt Date: 20220516
  Transmission Date: 20220721
  Serious: No
  Sender: FDA-Public Use
  Company Number: GB-ROCHE-1641219

PATIENT
  Age: 72 Year

DRUGS (62)
  1. TRASTUZUMAB [Suspect]
     Active Substance: TRASTUZUMAB
     Dosage: LOADING DOSE
     Dates: start: 20150513, end: 20150513
  2. TRASTUZUMAB [Suspect]
     Active Substance: TRASTUZUMAB
     Dosage: 300 MILLIGRAM, 3XW/ START DATE: 08-JAN-2016
     Dates: start: 20150603, end: 20150804
  3. TRASTUZUMAB [Suspect]
     Active Substance: TRASTUZUMAB
     Dosage: 400 MILLIGRAM, 3XW/ START DATE: 13-MAY-2015
     Dates: start: 20150818, end: 20160720
  4. TRASTUZUMAB [Suspect]
     Active Substance: TRASTUZUMAB
     Dosage: 300 MILLIGRAM
     Dates: start: 20160108, end: 20160405
  5. TRASTUZUMAB [Suspect]
     Active Substance: TRASTUZUMAB
     Dosage: 300 MILLIGRAM, 3XW// STAT DATE: 03-JUN-2015
     Dates: end: 20150804
  6. TRASTUZUMAB [Suspect]
     Active Substance: TRASTUZUMAB
     Dosage: 275 MILLIGRAM, Q3W / START DATE:18-SEP-2015
     Dates: start: 20150818, end: 20151211
  7. TRASTUZUMAB [Suspect]
     Active Substance: TRASTUZUMAB
     Dosage: 160 MILLIGRAM, Q3W/ START DATE: 10-MAY-2017
     Dates: end: 20180808
  8. TRASTUZUMAB [Suspect]
     Active Substance: TRASTUZUMAB
     Dosage: 148 MILLIGRAM, 3XW/ START DATE: 10-AUG-2016
     Dates: start: 20160810, end: 20170419
  9. TRASTUZUMAB [Suspect]
     Active Substance: TRASTUZUMAB
     Dosage: 300 MILLIGRAM, 3XW/ START DATE: 03-JUN-2015
     Dates: end: 20150604
  10. TRASTUZUMAB [Suspect]
     Active Substance: TRASTUZUMAB
     Dosage: 300 MILLIGRAM, Q3W/ START DATE: 03-JUN-2015
     Dates: start: 20150513, end: 20150828
  11. TRASTUZUMAB [Suspect]
     Active Substance: TRASTUZUMAB
     Dosage: 184 MILLIGRAM, Q3W/ START DATE: 26-APR-2016
     Dates: end: 20160720
  12. TRASTUZUMAB [Suspect]
     Active Substance: TRASTUZUMAB
     Dates: start: 20150603, end: 20150820
  13. TRASTUZUMAB [Suspect]
     Active Substance: TRASTUZUMAB
     Dosage: 160 MILLIGRAM, Q3W/ START DATE: 10-MAY-2017
     Dates: start: 20170510, end: 20180808
  14. PERTUZUMAB [Suspect]
     Active Substance: PERTUZUMAB
     Dates: start: 20150603, end: 20150807
  15. PERTUZUMAB [Suspect]
     Active Substance: PERTUZUMAB
  16. ADO-TRASTUZUMAB EMTANSINE [Suspect]
     Active Substance: ADO-TRASTUZUMAB EMTANSINE
     Dosage: 184 MILLIGRAM, Q3W/ START DATE: 26-APR-2016
     Dates: start: 20160426, end: 20160720
  17. ADO-TRASTUZUMAB EMTANSINE [Suspect]
     Active Substance: ADO-TRASTUZUMAB EMTANSINE
     Dosage: 184 MILLIGRAM, Q3W/ START DATE: 24-APR-2016
     Dates: start: 20160424, end: 20160720
  18. ADO-TRASTUZUMAB EMTANSINE [Suspect]
     Active Substance: ADO-TRASTUZUMAB EMTANSINE
     Dosage: 148 MILLIGRAM, Q3W/ START DATE: 10-AUG-2016
     Dates: start: 20160810, end: 20170419
  19. ADO-TRASTUZUMAB EMTANSINE [Suspect]
     Active Substance: ADO-TRASTUZUMAB EMTANSINE
     Dosage: 160 MILLIGRAM, Q3W/ START DATE: 10-MAY-2017
     Dates: start: 20170510, end: 20180808
  20. DOCETAXEL [Suspect]
     Active Substance: DOCETAXEL
     Dates: start: 20150514, end: 20150715
  21. DOCETAXEL [Suspect]
     Active Substance: DOCETAXEL
     Dosage: MOST RECENT DOSE ON 18/SEP/2015
     Dates: start: 20150828, end: 20150918
  22. EXEMESTANE [Suspect]
     Active Substance: EXEMESTANE
     Dates: start: 20151013, end: 201604
  23. NERATINIB [Suspect]
     Active Substance: NERATINIB
     Dosage: 240 MILLIGRAM, QD
     Dates: start: 20180825, end: 201811
  24. 3M CAVILON ANTIFUNGAL [Concomitant]
     Active Substance: MICONAZOLE NITRATE
  25. TICARCILLIN [Concomitant]
     Active Substance: TICARCILLIN
     Dosage: 125 MILLIGRAM, QD
     Dates: start: 20150804, end: 20150810
  26. TICARCILLIN [Concomitant]
     Active Substance: TICARCILLIN
     Dosage: 125 MG, QD
     Dates: start: 20150804, end: 20150810
  27. RANITIDINE [Concomitant]
     Active Substance: RANITIDINE
     Dates: start: 20150805, end: 20150807
  28. RANITIDINE [Concomitant]
     Active Substance: RANITIDINE
     Dates: start: 20150825, end: 20150827
  29. HYDROCORTISONE [Concomitant]
     Active Substance: HYDROCORTISONE
     Dosage: 100 MILLIGRAM, 100 MG
     Dates: start: 20150807, end: 20150807
  30. LOPERAMIDE [Concomitant]
     Active Substance: LOPERAMIDE
     Dates: start: 20181025, end: 20190406
  31. LANSOPRAZOLE [Concomitant]
     Active Substance: LANSOPRAZOLE
     Dates: start: 20181002, end: 201908
  32. DEXAMETHASONE [Concomitant]
     Active Substance: DEXAMETHASONE
     Dosage: THREE DAYS PRIOR TO CHEMOTHERAPY
     Dates: start: 20150803, end: 20150805
  33. DEXAMETHASONE [Concomitant]
     Active Substance: DEXAMETHASONE
     Dosage: LIQUID
     Dates: start: 20150714, end: 20150923
  34. LORAZEPAM [Concomitant]
     Active Substance: LORAZEPAM
     Dosage: 0.5 MILLIGRAM, UNK
     Dates: start: 20160830, end: 20190406
  35. LORAZEPAM [Concomitant]
     Active Substance: LORAZEPAM
     Dosage: 2 MILLIGRAM, UNK
     Dates: start: 20180917, end: 20180918
  36. CLAVULANIC ACID [Concomitant]
     Active Substance: CLAVULANIC ACID
     Dates: start: 20150804, end: 20150810
  37. DOMPERIDONE [Concomitant]
     Active Substance: DOMPERIDONE
     Dates: start: 20150803, end: 20150805
  38. CETIRIZINE [Concomitant]
     Active Substance: CETIRIZINE HYDROCHLORIDE
     Dates: start: 20150805, end: 20150807
  39. CETIRIZINE [Concomitant]
     Active Substance: CETIRIZINE HYDROCHLORIDE
     Dates: start: 20150825, end: 20150827
  40. CETIRIZINE [Concomitant]
     Active Substance: CETIRIZINE HYDROCHLORIDE
     Dates: end: 20190406
  41. LEVETIRACETAM [Concomitant]
     Active Substance: LEVETIRACETAM
     Dates: start: 20180918, end: 20190406
  42. SANDO-K [Concomitant]
     Dates: start: 20181120, end: 20181125
  43. SIMETHICONE (DIMETHICONE) [Concomitant]
     Active Substance: DIMETHICONE
     Dosage: UNK
  44. AMOXICILLIN\CLAVULANATE POTASSIUM [Concomitant]
     Active Substance: AMOXICILLIN\CLAVULANATE POTASSIUM
     Dates: start: 20150804, end: 20150810
  45. AMOXICILLIN\CLAVULANATE POTASSIUM [Concomitant]
     Active Substance: AMOXICILLIN\CLAVULANATE POTASSIUM
     Dates: start: 20180923, end: 20180930
  46. CALAMINE [Concomitant]
     Active Substance: CALAMINE\FERRIC OXIDE RED\ZINC OXIDE
     Dosage: UNK
     Dates: start: 201508, end: 201601
  47. CALAMINE [Concomitant]
     Active Substance: CALAMINE\FERRIC OXIDE RED\ZINC OXIDE
     Dosage: UNK
     Dates: start: 201508, end: 201601
  48. GLYCOPYRROLATE [Concomitant]
     Active Substance: GLYCOPYRROLATE
     Dosage: PRN (AS?NEEDED)
     Dates: start: 201901, end: 20190406
  49. MIDAZOLAM [Concomitant]
     Active Substance: MIDAZOLAM
     Dates: start: 201901, end: 20190406
  50. POTASSIUM CHLORIDE [Concomitant]
     Active Substance: POTASSIUM CHLORIDE
     Dosage: 2 DOSAGE FORM, QD
     Dates: start: 20181120, end: 20181125
  51. CYCLIZINE [Concomitant]
     Active Substance: CYCLIZINE
     Dates: start: 201901, end: 20190406
  52. OMEPRAZOLE [Concomitant]
     Active Substance: OMEPRAZOLE
     Dates: start: 201901, end: 20190406
  53. LACTULOSE [Concomitant]
     Active Substance: LACTULOSE
     Dates: start: 201901, end: 20190406
  54. CHLORPHENIRAMINE MALEATE [Concomitant]
     Active Substance: CHLORPHENIRAMINE MALEATE
     Dosage: 10 MILLIGRAM, UNK
     Dates: start: 20150807, end: 20150807
  55. HYPROMELLOSES [Concomitant]
     Active Substance: HYPROMELLOSES
     Dosage: UNK, 0.33
     Dates: end: 20160401
  56. HYPROMELLOSES [Concomitant]
     Active Substance: HYPROMELLOSES
     Dosage: 3 DOSAGE FORM, QD (3 OT, QD)
     Dates: end: 20160401
  57. AMOXICILLIN [Concomitant]
     Active Substance: AMOXICILLIN
     Dates: start: 20150804, end: 20150810
  58. OXYCODONE [Concomitant]
     Active Substance: OXYCODONE
     Dates: start: 201901, end: 20190406
  59. SENNOSIDE B [Concomitant]
     Active Substance: SENNOSIDE B
     Dosage: 15 MILLIGRAM, UNK
     Dates: start: 20160809, end: 20190406
  60. SENNOSIDE B [Concomitant]
     Active Substance: SENNOSIDE B
     Dosage: 30 MILLIGRAM, QD
     Dates: start: 20160809, end: 20190406
  61. BUDESONIDE [Concomitant]
     Active Substance: BUDESONIDE
     Dates: start: 20181025, end: 20181114
  62. AMOXICILLIN\CLAVULANATE POTASSIUM [Concomitant]
     Active Substance: AMOXICILLIN\CLAVULANATE POTASSIUM

REACTIONS (23)
  - Memory impairment [None]
  - Dementia [None]
  - Seizure [None]
  - Appendicitis [None]
  - Diarrhoea [None]
  - Catheter site haemorrhage [None]
  - Hypokalaemia [None]
  - Dry skin [None]
  - Fatigue [None]
  - Neuropathy peripheral [None]
  - Lacrimation increased [None]
  - Axillary pain [None]
  - Chest discomfort [None]
  - Ejection fraction decreased [None]
  - Seizure [None]
  - Panic attack [None]
  - Neuropathy peripheral [None]
  - Hypokalaemia [None]
  - Anaphylactic reaction [None]
  - Nail dystrophy [None]
  - Pruritus [None]
  - Constipation [None]
  - Insomnia [None]

NARRATIVE: CASE EVENT DATE: 20150624
